FAERS Safety Report 23201961 (Version 1)
Quarter: 2023Q4

REPORT INFORMATION
  Report Type: Spontaneous
  Country: US (occurrence: None)
  Receive Date: 20231118
  Receipt Date: 20231118
  Transmission Date: 20240109
  Serious: Yes (Other)
  Sender: FDA-Public Use
  Company Number: None

PATIENT
  Age: 45 Year
  Sex: 0

DRUGS (2)
  1. STELARA [Suspect]
     Active Substance: USTEKINUMAB
     Indication: Colitis ulcerative
     Dosage: OTHER FREQUENCY : ONE-TIME;?
     Route: 041
     Dates: start: 20231118, end: 20231118
  2. STELARA [Concomitant]
     Active Substance: USTEKINUMAB
     Dates: start: 20231118, end: 20231118

REACTIONS (6)
  - Infusion related reaction [None]
  - Malaise [None]
  - Chest pain [None]
  - Flushing [None]
  - Abdominal pain [None]
  - Blood pressure increased [None]

NARRATIVE: CASE EVENT DATE: 20231118
